FAERS Safety Report 5309442-3 (Version None)
Quarter: 2007Q2

REPORT INFORMATION
  Report Type: 
  Country: None (occurrence: None)
  Receive Date: 20070427
  Receipt Date: 20070419
  Transmission Date: 20071010
  Serious: No
  Sender: FDA-Public Use
  Company Number: PHEH2007US05825

PATIENT
  Age: 59 Year
  Sex: Female

DRUGS (3)
  1. ZELNORM [Suspect]
     Indication: IRRITABLE BOWEL SYNDROME
     Dosage: UNK, BID
     Route: 048
     Dates: end: 20070401
  2. DIOVAN [Concomitant]
     Indication: HYPERTENSION
     Dosage: UNK, UNK
     Route: 048
     Dates: end: 20061201
  3. DIOVAN HCT [Concomitant]
     Indication: PALPITATIONS
     Dosage: 80 MG VAL/12.5 MG HCT, UNK
     Route: 048
     Dates: start: 20061201

REACTIONS (8)
  - ABDOMINAL PAIN [None]
  - CARDIAC VALVE DISEASE [None]
  - DIVERTICULITIS [None]
  - DYSPNOEA [None]
  - GASTRIC EMPTYING STUDY [None]
  - IMPAIRED GASTRIC EMPTYING [None]
  - NAUSEA [None]
  - PALPITATIONS [None]
